FAERS Safety Report 21814169 (Version 1)
Quarter: 2023Q1

REPORT INFORMATION
  Report Type: Spontaneous
  Country: US (occurrence: US)
  Receive Date: 20230104
  Receipt Date: 20230104
  Transmission Date: 20230417
  Serious: No
  Sender: FDA-Public Use
  Company Number: US-009507513-2212USA010528

PATIENT
  Sex: Female

DRUGS (1)
  1. JANUVIA [Suspect]
     Active Substance: SITAGLIPTIN PHOSPHATE
     Indication: Diabetes mellitus
     Dosage: 2 TIMES DAILY (BID)
     Route: 048

REACTIONS (3)
  - Therapy cessation [Unknown]
  - Inappropriate schedule of product administration [Unknown]
  - No adverse event [Unknown]
